FAERS Safety Report 5005446-9 (Version None)
Quarter: 2006Q2

REPORT INFORMATION
  Report Type: 
  Country: None (occurrence: None)
  Receive Date: 20060518
  Receipt Date: 20050318
  Transmission Date: 20061013
  Serious: Yes (Hospitalization, Other)
  Sender: FDA-Public Use
  Company Number: US-MERCK-0503USA03821

PATIENT
  Age: 52 Year
  Sex: Male
  Weight: 75 kg

DRUGS (11)
  1. VIOXX [Suspect]
     Indication: ARTHRITIS
     Route: 048
     Dates: start: 20010201, end: 20041001
  2. VIOXX [Suspect]
     Route: 048
     Dates: start: 20010201, end: 20041001
  3. VASOTEC [Concomitant]
     Route: 048
  4. HYDROCHLOROTHIAZIDE [Concomitant]
     Route: 065
  5. CARISOPRODOL [Concomitant]
     Route: 065
  6. LORTAB [Concomitant]
     Route: 065
  7. ZOCOR [Concomitant]
     Route: 048
  8. PLAVIX [Concomitant]
     Route: 065
  9. PREDNISONE [Concomitant]
     Route: 065
  10. SINEMET [Concomitant]
     Route: 048
  11. ASPIRIN [Concomitant]
     Route: 065

REACTIONS (5)
  - ARTHROPATHY [None]
  - CEREBROVASCULAR ACCIDENT [None]
  - MYOCARDIAL INFARCTION [None]
  - OBSTRUCTION [None]
  - SKIN CANCER [None]
